FAERS Safety Report 26204212 (Version 1)
Quarter: 2025Q4

REPORT INFORMATION
  Report Type: Spontaneous
  Country: US (occurrence: None)
  Receive Date: 20251226
  Receipt Date: 20251226
  Transmission Date: 20260118
  Serious: Yes (Other)
  Sender: UCB
  Company Number: US-UCBSA-2025080353

PATIENT
  Age: 18 Year

DRUGS (34)
  1. VIMPAT [Suspect]
     Active Substance: LACOSAMIDE
     Indication: Product used for unknown indication
     Dosage: 375 MILLIGRAM, TOTAL (TAKE ONE AND ONE HALF TABLET(S) (75 MG TOTAL) BY MOUTH AT BEDTIME.)
     Route: 061
  2. VIMPAT [Suspect]
     Active Substance: LACOSAMIDE
     Dosage: INCREASED TO 4/2
     Route: 061
  3. VIMPAT [Suspect]
     Active Substance: LACOSAMIDE
     Dosage: 100 MILLIGRAM, ONCE DAILY (QD) (TAKE ONE AND ONE HALF TABLET(S) (75 MG TOTAL) BY MOUTH AT BEDTIME)
     Route: 061
  4. VIMPAT [Suspect]
     Active Substance: LACOSAMIDE
     Dosage: 450 MILLIGRAM
  5. BRIVIACT [Suspect]
     Active Substance: BRIVARACETAM
     Indication: Product used for unknown indication
     Dosage: 100 MILLIGRAM, 2X/DAY (BID)
     Route: 061
  6. CHOLECALCIFEROL [Concomitant]
     Active Substance: CHOLECALCIFEROL
     Indication: Product used for unknown indication
     Dosage: 450 MILLIGRAM, TOTAL
     Route: 061
  7. CLONAZEPAM [Concomitant]
     Active Substance: CLONAZEPAM
     Indication: Product used for unknown indication
     Dosage: DISSOLVE 1 TABLET IN MOUTH 3 TIMES DAILY
     Route: 061
  8. TOPIRAMATE [Concomitant]
     Active Substance: TOPIRAMATE
     Indication: Product used for unknown indication
     Dosage: UNK, 2X/DAY (BID) (TAKE 2 +1/2 TABS BY MOUTH 2 TIMES DAILY)
     Route: 061
  9. CHOLECALCIFEROL [Concomitant]
     Active Substance: CHOLECALCIFEROL
     Indication: Product used for unknown indication
     Dosage: 1 DOSAGE FORM, ONCE DAILY (QD)
     Route: 061
  10. CLORAZEPATE DIPOTASSIUM [Concomitant]
     Active Substance: CLORAZEPATE DIPOTASSIUM
     Indication: Illness
     Dosage: 7.5 MILLIGRAM, 2X/DAY (BID) (PERIODS OF ILLNESS X 5-7 DAYS)
     Route: 061
  11. MIDAZOLAM [Concomitant]
     Active Substance: MIDAZOLAM
     Indication: Seizure
     Dosage: 5 MG/0.1 ML (SPRAY 5 MG IN NOSE ONCE AS NEEDED)
  12. CLONAZEPAM [Concomitant]
     Active Substance: CLONAZEPAM
     Indication: Product used for unknown indication
     Dosage: 2 DOSAGE FORM, 3X/DAY (TID)
     Route: 061
  13. PYRIDOXINE [Concomitant]
     Active Substance: PYRIDOXINE
     Indication: Product used for unknown indication
     Dosage: 50 MILLIGRAM, ONCE DAILY (QD)
     Route: 061
  14. CLONAZEPAM [Concomitant]
     Active Substance: CLONAZEPAM
     Indication: Product used for unknown indication
     Dosage: 0.5 MILLIGRAM, 2X/DAY (BID) (WEEK 1 - GIVE 1 TAB IN AM AND AFTERNOON (WITH 1 MG TAB) WEEK 2- GIVE 1 TAB IN AFTERNOON)
     Route: 061
  15. OXYGEN [Concomitant]
     Active Substance: OXYGEN
     Indication: Generalised tonic-clonic seizure
     Dosage: FLOW 1 O LITERS PER MINUTE, PRN, VIA FACE MASK
  16. OMEPRAZOLE [Concomitant]
     Active Substance: OMEPRAZOLE
     Indication: Product used for unknown indication
     Dosage: 20 MILLIGRAM, ONCE DAILY (QD) (DAILY MORNING)
     Route: 061
  17. TRAZODONE [Concomitant]
     Active Substance: TRAZODONE HYDROCHLORIDE
     Indication: Sleep disorder
     Dosage: 25 MILLIGRAM, ONCE DAILY (QD) (HALF OF 50 MG TABLET)
     Route: 061
  18. QUETIAPINE [Concomitant]
     Active Substance: QUETIAPINE
     Indication: Product used for unknown indication
     Dosage: 50 MILLIGRAM, ONCE DAILY (QD) (EVENING)
     Route: 061
  19. MELATONIN [Concomitant]
     Active Substance: MELATONIN
     Indication: Product used for unknown indication
     Dosage: 5 MILLIGRAM, ONCE DAILY (QD)
     Route: 061
  20. MIRALAX [Concomitant]
     Active Substance: POLYETHYLENE GLYCOL 3350
     Indication: Product used for unknown indication
     Dosage: 17 MILLIGRAM, AS NEEDED (PRN) (TAKE 2 CAPFULS BY MOUTH ONCE A DAY AS NEEDED)
     Route: 061
  21. TOPAMAX [Concomitant]
     Active Substance: TOPIRAMATE
     Indication: Product used for unknown indication
     Dosage: 250 MILLIGRAM, 2X/DAY (BID)
  22. CLONAZEPAM [Concomitant]
     Active Substance: CLONAZEPAM
     Indication: Product used for unknown indication
     Dosage: 2 MILLIGRAM, 3X/DAY (TID)
  23. DIASTAT [Concomitant]
     Active Substance: DIAZEPAM
     Indication: Product used for unknown indication
     Dosage: 12.5 MILLIGRAM
  24. KLONOPIN [Concomitant]
     Active Substance: CLONAZEPAM
     Indication: Product used for unknown indication
     Dosage: UNK, AS NEEDED (PRN)
  25. ATIVAN [Concomitant]
     Active Substance: LORAZEPAM
     Indication: Product used for unknown indication
  26. PYRIDOXINE [Concomitant]
     Active Substance: PYRIDOXINE
     Indication: Product used for unknown indication
     Dosage: 100 MILLIGRAM, ONCE DAILY (QD)
  27. TRAZODONE [Concomitant]
     Active Substance: TRAZODONE HYDROCHLORIDE
     Indication: Product used for unknown indication
     Dosage: 25 MILLIGRAM, ONCE DAILY (QD) (QHS)
  28. SEROQUEL [Concomitant]
     Active Substance: QUETIAPINE FUMARATE
     Indication: Sleep disorder
     Dosage: 50 MILLIGRAM, ONCE DAILY (QD) (QHS)
  29. MELATONIN [Concomitant]
     Active Substance: MELATONIN
     Indication: Product used for unknown indication
     Dosage: 5 MILLIGRAM, ONCE DAILY (QD) (QMS)
  30. FENFLURAMINE [Concomitant]
     Active Substance: FENFLURAMINE
     Indication: Product used for unknown indication
  31. STIRIPENTOL [Concomitant]
     Active Substance: STIRIPENTOL
     Indication: Product used for unknown indication
  32. FELBAMATE [Concomitant]
     Active Substance: FELBAMATE
     Indication: Product used for unknown indication
  33. BANZEL [Concomitant]
     Active Substance: RUFINAMIDE
     Indication: Product used for unknown indication
  34. ONFI [Concomitant]
     Active Substance: CLOBAZAM
     Indication: Product used for unknown indication

REACTIONS (19)
  - Seizure [Unknown]
  - Ventricular septal defect [Unknown]
  - Mental status changes [Unknown]
  - Weight abnormal [Unknown]
  - Epistaxis [Unknown]
  - Abdominal pain [Unknown]
  - Constipation [Unknown]
  - Enuresis [Unknown]
  - Dizziness [Unknown]
  - Agitation [Unknown]
  - Disturbance in attention [Unknown]
  - Psychomotor hyperactivity [Unknown]
  - Sinusitis [Unknown]
  - Pineal gland cyst [Unknown]
  - Speech disorder [Unknown]
  - Dental operation [Unknown]
  - Underweight [Unknown]
  - Wrong technique in product usage process [Unknown]
  - Off label use [Unknown]
